FAERS Safety Report 7672354-4 (Version None)
Quarter: 2011Q3

REPORT INFORMATION
  Report Type: 
  Country: None (occurrence: None)
  Receive Date: 20110809
  Receipt Date: 20110714
  Transmission Date: 20111222
  Serious: Yes (Other)
  Sender: FDA-Public Use
  Company Number: CZ-JNJFOC-20110800447

PATIENT
  Sex: Female

DRUGS (1)
  1. NORGESTIMATE AND ETHINYL ESTRADIOL [Suspect]
     Indication: CONTRACEPTION
     Route: 065

REACTIONS (2)
  - THORACIC OUTLET SYNDROME [None]
  - VENOUS THROMBOSIS [None]
